FAERS Safety Report 17829679 (Version 5)
Quarter: 2020Q3

REPORT INFORMATION
  Report Type: Spontaneous
  Country: CA (occurrence: CA)
  Receive Date: 20200527
  Receipt Date: 20200923
  Transmission Date: 20201102
  Serious: Yes (Other)
  Sender: FDA-Public Use
  Company Number: CA-PFIZER INC-2020204675

PATIENT
  Age: 23 Year
  Sex: Female

DRUGS (13)
  1. XELJANZ [Suspect]
     Active Substance: TOFACITINIB CITRATE
     Indication: MIXED CONNECTIVE TISSUE DISEASE
     Dosage: 5 MG, 2X/DAY
     Route: 048
     Dates: start: 2020, end: 20200914
  2. METHOTREXATE. [Concomitant]
     Active Substance: METHOTREXATE
     Dosage: 25 MG, WEEKLY
     Route: 048
  3. AMLODIPINE [Concomitant]
     Active Substance: AMLODIPINE BESYLATE
     Dosage: UNK
  4. PLAQUENIL [Concomitant]
     Active Substance: HYDROXYCHLOROQUINE SULFATE
     Dosage: UNK
  5. ADENOSYL [Concomitant]
     Dosage: UNK
  6. ASA [Concomitant]
     Active Substance: ASPIRIN
     Dosage: 81 MG, 1X/DAY
  7. SILDENAFIL. [Concomitant]
     Active Substance: SILDENAFIL
     Dosage: 75 MG (AM/EARLY HOURS)
  8. FOLIC ACID. [Concomitant]
     Active Substance: FOLIC ACID
     Dosage: UNK
  9. VITAMIN D [ERGOCALCIFEROL] [Concomitant]
     Active Substance: ERGOCALCIFEROL
     Dosage: UNK
  10. XELJANZ [Suspect]
     Active Substance: TOFACITINIB CITRATE
     Indication: PANNICULITIS
     Dosage: 5 MG, 2X/DAY
     Route: 048
     Dates: start: 201906, end: 202005
  11. HYDROXYCHLOROQUINE [Concomitant]
     Active Substance: HYDROXYCHLOROQUINE
     Dosage: UNK
  12. NIFEDIPINE. [Concomitant]
     Active Substance: NIFEDIPINE
     Dosage: 20 MG, 1X/DAY
  13. SILDENAFIL. [Concomitant]
     Active Substance: SILDENAFIL
     Indication: TRIGGER FINGER
     Dosage: 50 MG (PM)
     Dates: start: 201807

REACTIONS (7)
  - Skin ulcer [Unknown]
  - Drug effective for unapproved indication [Unknown]
  - Wound infection staphylococcal [Unknown]
  - Condition aggravated [Unknown]
  - Product use in unapproved indication [Unknown]
  - Erythema nodosum [Unknown]
  - Off label use [Unknown]

NARRATIVE: CASE EVENT DATE: 2019
